FAERS Safety Report 6216119-9 (Version None)
Quarter: 2009Q2

REPORT INFORMATION
  Report Type: 
  Country: None (occurrence: None)
  Receive Date: 20090605
  Receipt Date: 20090528
  Transmission Date: 20091009
  Serious: Yes (Other)
  Sender: FDA-Public Use
  Company Number: US-AVENTIS-200914580US

PATIENT
  Age: 55 Year
  Sex: Female

DRUGS (3)
  1. LANTUS [Suspect]
     Route: 058
  2. APIDRA [Suspect]
     Dosage: DOSE: SLIDING SCALE
     Route: 058
  3. OPTICLIK (INSULIN INJECTION PEN) [Suspect]

REACTIONS (1)
  - VISUAL IMPAIRMENT [None]
